FAERS Safety Report 6710737-7 (Version None)
Quarter: 2010Q2

REPORT INFORMATION
  Report Type: 
  Country: None (occurrence: None)
  Receive Date: 20100504
  Receipt Date: 20100504
  Transmission Date: 20101027
  Serious: Yes (Hospitalization)
  Sender: FDA-Public Use
  Company Number: None

PATIENT
  Age: 73 Year
  Sex: Male
  Weight: 69 kg

DRUGS (4)
  1. REOPRO [Suspect]
     Indication: CATHETERISATION CARDIAC
     Dosage: 0.25MG/KG BOLUS, 0.125 MCG/KG/BOLUS, 0.125 MCG/KG/MIN X 12 HOURS IV
     Route: 042
     Dates: start: 20100330, end: 20100331
  2. REOPRO [Suspect]
     Indication: ELECTROCARDIOGRAM ST SEGMENT ELEVATION
     Dosage: 0.25MG/KG BOLUS, 0.125 MCG/KG/BOLUS, 0.125 MCG/KG/MIN X 12 HOURS IV
     Route: 042
     Dates: start: 20100330, end: 20100331
  3. REOPRO [Suspect]
     Indication: CATHETERISATION CARDIAC
     Dosage: 0.25MG/KG BOLUS, 0.125 MCG/KG/BOLUS, 0.125 MCG/KG/MIN X 12 HOURS IV
     Route: 042
     Dates: start: 20100421, end: 20100421
  4. REOPRO [Suspect]
     Indication: ELECTROCARDIOGRAM ST SEGMENT ELEVATION
     Dosage: 0.25MG/KG BOLUS, 0.125 MCG/KG/BOLUS, 0.125 MCG/KG/MIN X 12 HOURS IV
     Route: 042
     Dates: start: 20100421, end: 20100421

REACTIONS (1)
  - PLATELET COUNT DECREASED [None]
